FAERS Safety Report 8145799-6 (Version None)
Quarter: 2012Q1

REPORT INFORMATION
  Report Type: 
  Country: None (occurrence: None)
  Receive Date: 20120217
  Receipt Date: 20110219
  Transmission Date: 20120608
  Serious: No
  Sender: FDA-Public Use
  Company Number: US-ABBOTT-11P-163-0706201-00

PATIENT
  Sex: Male
  Weight: 122.58 kg

DRUGS (2)
  1. ASPIRIN [Concomitant]
     Indication: PRODUCT USED FOR UNKNOWN INDICATION
     Dosage: QHS PRN
  2. SIMCOR [Suspect]
     Indication: LOW DENSITY LIPOPROTEIN INCREASED
     Dosage: 500/20MG QHS
     Dates: start: 20100701

REACTIONS (3)
  - SKIN BURNING SENSATION [None]
  - HOT FLUSH [None]
  - GENERALISED ERYTHEMA [None]
